FAERS Safety Report 8470290-7 (Version None)
Quarter: 2012Q2

REPORT INFORMATION
  Report Type: 
  Country: None (occurrence: None)
  Receive Date: 20120627
  Receipt Date: 20120621
  Transmission Date: 20120825
  Serious: Yes (Other)
  Sender: FDA-Public Use
  Company Number: US-BAYER-2012-053842

PATIENT
  Age: 70 Year
  Sex: Female

DRUGS (1)
  1. NEXAVAR [Suspect]
     Indication: HEPATIC NEOPLASM MALIGNANT
     Dosage: 200 MG, BID
     Dates: start: 20111001

REACTIONS (5)
  - PULMONARY EMBOLISM [None]
  - DYSPNOEA [None]
  - COUGH [None]
  - INJECTION SITE MASS [None]
  - VENOUS THROMBOSIS [None]
